FAERS Safety Report 6077622-8 (Version None)
Quarter: 2009Q1

REPORT INFORMATION
  Report Type: 
  Country: None (occurrence: None)
  Receive Date: 20090213
  Receipt Date: 20090202
  Transmission Date: 20090719
  Serious: Yes (Hospitalization)
  Sender: FDA-Public Use
  Company Number: US-GILEAD-2009-0020141

PATIENT
  Age: 31 Year
  Sex: Male

DRUGS (2)
  1. ATRIPLA [Suspect]
     Indication: HIV INFECTION
     Dates: start: 20090101
  2. VALTREX [Concomitant]

REACTIONS (2)
  - HAEMOLYTIC ANAEMIA [None]
  - RASH [None]
